FAERS Safety Report 5747791-5 (Version None)
Quarter: 2008Q2

REPORT INFORMATION
  Report Type: 
  Country: None (occurrence: None)
  Receive Date: 20080523
  Receipt Date: 20080519
  Transmission Date: 20081010
  Serious: Yes (Disabling)
  Sender: FDA-Public Use
  Company Number: A0728532A

PATIENT
  Age: 60 Year

DRUGS (5)
  1. LOVAZA [Suspect]
     Dosage: 3G PER DAY
     Route: 048
     Dates: start: 20080401, end: 20080501
  2. ROSUVASTATIN CALCIUM [Suspect]
     Route: 048
  3. BETA BLOCKERS [Concomitant]
  4. LANTUS [Concomitant]
  5. HUMULIN R [Concomitant]

REACTIONS (8)
  - ANOREXIA [None]
  - ARTHRALGIA [None]
  - CHILLS [None]
  - MYALGIA [None]
  - NAUSEA [None]
  - OVERDOSE [None]
  - PYREXIA [None]
  - WEIGHT DECREASED [None]
